FAERS Safety Report 7963248-5 (Version None)
Quarter: 2011Q4

REPORT INFORMATION
  Report Type: 
  Country: None (occurrence: None)
  Receive Date: 20111208
  Receipt Date: 20111201
  Transmission Date: 20120403
  Serious: No
  Sender: FDA-Public Use
  Company Number: US-BIOGENIDEC-2011BI020259

PATIENT
  Age: 45 Year
  Sex: Female

DRUGS (2)
  1. TYSABRI [Suspect]
     Indication: MULTIPLE SCLEROSIS
     Route: 042
     Dates: start: 20090715
  2. MEDICATIONS (NOS) [Concomitant]
     Indication: NAUSEA

REACTIONS (6)
  - FOOT FRACTURE [None]
  - SKELETAL INJURY [None]
  - LIGAMENT SPRAIN [None]
  - VERTIGO [None]
  - FATIGUE [None]
  - DECREASED APPETITE [None]
